FAERS Safety Report 5266155-4 (Version None)
Quarter: 2007Q1

REPORT INFORMATION
  Report Type: 
  Country: None (occurrence: None)
  Receive Date: 20070315
  Receipt Date: 20070227
  Transmission Date: 20070707
  Serious: Yes (Other)
  Sender: FDA-Public Use
  Company Number: US-AMGEN-US213015

PATIENT
  Sex: Female

DRUGS (1)
  1. ENBREL [Suspect]
     Indication: RHEUMATOID ARTHRITIS
     Route: 058
     Dates: start: 20050701

REACTIONS (5)
  - HEPATIC ENZYME INCREASED [None]
  - INJECTION SITE PAIN [None]
  - PAIN IN EXTREMITY [None]
  - PNEUMONIA [None]
  - UPPER RESPIRATORY TRACT INFECTION [None]
